FAERS Safety Report 4445295-3 (Version None)
Quarter: 2004Q3

REPORT INFORMATION
  Report Type: 
  Country: None (occurrence: None)
  Receive Date: 20040730
  Receipt Date: 20040702
  Transmission Date: 20050211
  Serious: No
  Sender: FDA-Public Use
  Company Number: PHEH2004US07187

PATIENT
  Age: 55 Year
  Sex: Male

DRUGS (3)
  1. GLEEVEC [Suspect]
     Indication: CHRONIC MYELOID LEUKAEMIA
     Dosage: 600 MG,QD,ORAL
     Route: 048
     Dates: start: 20020501
  2. NORVASC [Concomitant]
  3. FLONASE [Concomitant]

REACTIONS (2)
  - ORAL PAIN [None]
  - PALATAL DISORDER [None]
